FAERS Safety Report 22121203 (Version 5)
Quarter: 2024Q1

REPORT INFORMATION
  Report Type: Spontaneous
  Country: US (occurrence: US)
  Receive Date: 20230321
  Receipt Date: 20240321
  Transmission Date: 20240410
  Serious: Yes (Other)
  Sender: FDA-Public Use
  Company Number: US-PFIZER INC-PV202300053312

PATIENT
  Age: 87 Year
  Sex: Female

DRUGS (3)
  1. IBRANCE [Suspect]
     Active Substance: PALBOCICLIB
     Dosage: ONCE DAILY, DAYS 1-21 EVERY 28 DAYS
     Route: 048
  2. IBRANCE [Suspect]
     Active Substance: PALBOCICLIB
     Dosage: ONCE DAILY, DAYS 1-21 OF A 28 DAY CYCLE
     Route: 048
     Dates: start: 20230318
  3. IBRANCE [Suspect]
     Active Substance: PALBOCICLIB
     Dosage: ONE DAILY DAYS 1-21 EVERY 28 DAYS

REACTIONS (1)
  - Neutropenia [Unknown]
